FAERS Safety Report 14046593 (Version 5)
Quarter: 2018Q2

REPORT INFORMATION
  Report Type: Spontaneous
  Country: US (occurrence: US)
  Receive Date: 20171005
  Receipt Date: 20180419
  Transmission Date: 20180711
  Serious: Yes (Hospitalization, Other)
  Sender: FDA-Public Use
  Company Number: US-PFIZER INC-2017424733

PATIENT
  Age: 5 Year
  Sex: Female
  Weight: 18 kg

DRUGS (3)
  1. LEVOTHYROXINE. [Concomitant]
     Active Substance: LEVOTHYROXINE
     Dosage: UNK
  2. GENOTROPIN [Suspect]
     Active Substance: SOMATROPIN
     Indication: BLOOD GROWTH HORMONE
     Dosage: 0.4 MG, DAILY(0.4MG ONE INJECTION DAILY)
     Route: 058
     Dates: end: 20180329
  3. HYDROCORTISONE. [Concomitant]
     Active Substance: HYDROCORTISONE
     Dosage: UNK

REACTIONS (6)
  - Expired device used [Unknown]
  - Incorrect dose administered [Unknown]
  - Pyrexia [Unknown]
  - Drug ineffective [Unknown]
  - Bronchitis [Not Recovered/Not Resolved]
  - Pneumonia [Recovering/Resolving]

NARRATIVE: CASE EVENT DATE: 20180330
